FAERS Safety Report 22270701 (Version 1)
Quarter: 2023Q2

REPORT INFORMATION
  Report Type: Spontaneous
  Country: None (occurrence: FR)
  Receive Date: 20230501
  Receipt Date: 20230501
  Transmission Date: 20230721
  Serious: Yes (Life-Threatening)
  Sender: FDA-Public Use
  Company Number: FR-B.Braun Medical Inc.-2140980

PATIENT
  Age: 30 Year
  Sex: Female

DRUGS (7)
  1. METRONIDAZOLE [Suspect]
     Active Substance: METRONIDAZOLE
     Route: 042
  2. ROCURONIUM BROMIDE [Suspect]
     Active Substance: ROCURONIUM BROMIDE
  3. NOREPINEPHRINE [Suspect]
     Active Substance: NOREPINEPHRINE
  4. SUGAMMADEX SODIUM [Suspect]
     Active Substance: SUGAMMADEX SODIUM
  5. REMIFENTANIL HYDROCHLORIDE [Suspect]
     Active Substance: REMIFENTANIL HYDROCHLORIDE
  6. PROPOFOL [Suspect]
     Active Substance: PROPOFOL
  7. CEFOXITIN [Suspect]
     Active Substance: CEFOXITIN SODIUM

REACTIONS (2)
  - Haemodynamic instability [Recovered/Resolved]
  - Rash maculo-papular [Recovered/Resolved]
